FAERS Safety Report 12636824 (Version 1)
Quarter: 2016Q3

REPORT INFORMATION
  Report Type: Report from Study
  Country: AE (occurrence: AE)
  Receive Date: 20160809
  Receipt Date: 20160809
  Transmission Date: 20161109
  Serious: Yes (Other)
  Sender: FDA-Public Use
  Company Number: PHHY2016AE106160

PATIENT
  Age: 47 Year
  Sex: Male

DRUGS (3)
  1. EXFORGE HCT [Suspect]
     Active Substance: AMLODIPINE BESYLATE\HYDROCHLOROTHIAZIDE\VALSARTAN
  2. EXFORGE HCT [Suspect]
     Active Substance: AMLODIPINE BESYLATE\HYDROCHLOROTHIAZIDE\VALSARTAN
     Indication: ESSENTIAL HYPERTENSION
     Dosage: 1 DF, AMLODIPINE BESYLATE 5 MG/VALSARTAN 160 MG/HYDROCHLOROTHIAZIDE 12.5 MG
     Route: 048
  3. ATORVASTATIN [Concomitant]
     Active Substance: ATORVASTATIN
     Indication: DYSLIPIDAEMIA
     Dosage: UNK
     Route: 065
     Dates: start: 20110515

REACTIONS (5)
  - Glycosylated haemoglobin increased [Unknown]
  - Blood potassium decreased [Unknown]
  - Hyperglycaemia [Recovered/Resolved]
  - Blood creatinine increased [Unknown]
  - Blood urea increased [Unknown]

NARRATIVE: CASE EVENT DATE: 20141023
